FAERS Safety Report 18324241 (Version 1)
Quarter: 2020Q3

REPORT INFORMATION
  Report Type: Report from Study
  Country: GB (occurrence: GB)
  Receive Date: 20200929
  Receipt Date: 20200929
  Transmission Date: 20201103
  Serious: Yes (Hospitalization)
  Sender: FDA-Public Use
  Company Number: GB-MYLANLABS-2020M1081285

PATIENT
  Age: 45 Year
  Sex: Female

DRUGS (9)
  1. MORPHINE [Concomitant]
     Active Substance: MORPHINE
     Dosage: UNK
  2. METFORMIN [Concomitant]
     Active Substance: METFORMIN HYDROCHLORIDE
     Dosage: UNK
  3. NITROFURANTOIN. [Concomitant]
     Active Substance: NITROFURANTOIN
     Dosage: UNK
  4. PERTUZUMAB. [Suspect]
     Active Substance: PERTUZUMAB
     Indication: BREAST CANCER
     Dosage: 840 MILLIGRAM, Q3W
     Route: 042
     Dates: start: 20181120
  5. SIMVASTATIN. [Concomitant]
     Active Substance: SIMVASTATIN
     Dosage: UNK
  6. RAMIPRIL. [Concomitant]
     Active Substance: RAMIPRIL
     Dosage: UNK
  7. TRASTUZUMAB. [Suspect]
     Active Substance: TRASTUZUMAB
     Indication: BREAST CANCER
     Dosage: 8 MILLIGRAM, Q3W
     Route: 042
     Dates: start: 20171108
  8. DOCETAXEL. [Suspect]
     Active Substance: DOCETAXEL
     Indication: BREAST CANCER
     Dosage: 148 MILLIGRAM, Q3W
     Route: 042
     Dates: start: 20171108, end: 20180131
  9. ONDANSETRON [Concomitant]
     Active Substance: ONDANSETRON
     Dosage: UNK

REACTIONS (1)
  - Device related infection [Recovered/Resolved]

NARRATIVE: CASE EVENT DATE: 20191125
